FAERS Safety Report 20092480 (Version 1)
Quarter: 2021Q4

REPORT INFORMATION
  Report Type: Spontaneous
  Country: CO (occurrence: CO)
  Receive Date: 20211119
  Receipt Date: 20211119
  Transmission Date: 20220304
  Serious: No
  Sender: FDA-Public Use
  Company Number: CO-PFIZER INC-202101241197

PATIENT
  Age: 16 Year
  Sex: Male

DRUGS (3)
  1. GENOTROPIN [Suspect]
     Active Substance: SOMATROPIN
     Indication: Growth retardation
     Dosage: 1.6 MG
     Route: 058
     Dates: start: 2018
  2. GENOTROPIN [Suspect]
     Active Substance: SOMATROPIN
     Indication: Epiphyses delayed fusion
  3. GENOTROPIN [Suspect]
     Active Substance: SOMATROPIN
     Indication: Growth hormone deficiency

REACTIONS (4)
  - Device information output issue [Unknown]
  - Expired device used [Unknown]
  - Needle issue [Unknown]
  - Device leakage [Unknown]

NARRATIVE: CASE EVENT DATE: 20210201
